FAERS Safety Report 20378146 (Version 2)
Quarter: 2022Q1

REPORT INFORMATION
  Report Type: Report from Study
  Country: US (occurrence: US)
  Receive Date: 20220126
  Receipt Date: 20220129
  Transmission Date: 20220423
  Serious: Yes (Death, Other)
  Sender: FDA-Public Use
  Company Number: US-NOVARTISPH-NVSC2022US015885

PATIENT
  Sex: Male

DRUGS (1)
  1. LUTATHERA [Suspect]
     Active Substance: LUTETIUM OXODOTREOTIDE LU-177
     Indication: Product used for unknown indication
     Dosage: UNK
     Route: 042
     Dates: start: 20211208, end: 20211208

REACTIONS (4)
  - Cardiac failure congestive [Fatal]
  - Cardiac arrest [Fatal]
  - Mental status changes [Fatal]
  - COVID-19 [Fatal]
